FAERS Safety Report 5995037-5 (Version None)
Quarter: 2008Q4

REPORT INFORMATION
  Report Type: 
  Country: None (occurrence: None)
  Receive Date: 20081212
  Receipt Date: 20080919
  Transmission Date: 20090506
  Serious: No
  Sender: FDA-Public Use
  Company Number: US-ABBOTT-08P-163-0477220-00

PATIENT
  Sex: Female
  Weight: 9.08 kg

DRUGS (1)
  1. HUMIRA [Suspect]
     Indication: DRUG EXPOSURE VIA BREAST MILK
     Route: 063

REACTIONS (4)
  - COUGH [None]
  - DRUG EXPOSURE VIA BREAST MILK [None]
  - LOWER RESPIRATORY TRACT INFECTION [None]
  - PYREXIA [None]
